FAERS Safety Report 9120957 (Version 1)
Quarter: 2013Q1

REPORT INFORMATION
  Report Type: Spontaneous
  Country: IT (occurrence: IT)
  Receive Date: 20130226
  Receipt Date: 20130226
  Transmission Date: 20140127
  Serious: Yes (Hospitalization)
  Sender: FDA-Public Use
  Company Number: IT-GLAXOSMITHKLINE-B0870416A

PATIENT
  Age: 86 Year
  Sex: Female

DRUGS (7)
  1. ARIXTRA [Suspect]
     Indication: THROMBOSIS PROPHYLAXIS
     Dosage: 1UNIT PER DAY
     Route: 058
     Dates: start: 20120101, end: 20121230
  2. BISOPROLOL [Concomitant]
     Dosage: 2.5MG PER DAY
     Route: 048
  3. ALLOPURINOL [Concomitant]
     Dosage: 300MG PER DAY
     Route: 048
  4. TAPAZOLE [Concomitant]
     Dosage: 1TAB PER DAY
     Route: 048
  5. LASIX [Concomitant]
     Dosage: 1TAB PER DAY
     Route: 048
  6. KANRENOL [Concomitant]
     Route: 048
  7. LANOXIN [Concomitant]
     Dosage: 1TAB PER DAY
     Route: 048

REACTIONS (1)
  - Melaena [Unknown]
